FAERS Safety Report 5626314-5 (Version None)
Quarter: 2008Q1

REPORT INFORMATION
  Report Type: 
  Country: None (occurrence: None)
  Receive Date: 20080211
  Receipt Date: 20080130
  Transmission Date: 20080703
  Serious: Yes (Hospitalization)
  Sender: FDA-Public Use
  Company Number: IT-1164468

PATIENT
  Age: 41 Year
  Sex: Female

DRUGS (1)
  1. CIPRO HC [Suspect]
     Indication: OTITIS MEDIA
     Dosage: 4 DROPS X2 AURICULAR (OTIC)
     Route: 001
     Dates: start: 20070917, end: 20070923

REACTIONS (3)
  - FACIAL PARESIS [None]
  - MEDICATION RESIDUE [None]
  - TYMPANIC MEMBRANE PERFORATION [None]
